FAERS Safety Report 4809152-2 (Version None)
Quarter: 2005Q4

REPORT INFORMATION
  Report Type: 
  Country: None (occurrence: None)
  Receive Date: 20051021
  Receipt Date: 20030321
  Transmission Date: 20060501
  Serious: No
  Sender: FDA-Public Use
  Company Number: FR_030101875

PATIENT
  Age: 23 Year
  Sex: Male
  Weight: 60 kg

DRUGS (6)
  1. ZYPREXA [Suspect]
     Indication: PSYCHOTIC DISORDER
     Dosage: 5 MG/EVERY OTHER DAY
     Dates: start: 20021031, end: 20030301
  2. ZYPREXA [Suspect]
     Indication: SCHIZOPHRENIA
     Dosage: 5 MG/EVERY OTHER DAY
     Dates: start: 20021031, end: 20030301
  3. PRAZEPAM [Concomitant]
  4. STILNOX (ZOLPIDEM) [Concomitant]
  5. PAROXETINE HYDROCHLORIDE [Concomitant]
  6. HEPT-A-MYL (HEPTAMINOL HYDROCHLORIDE) [Concomitant]

REACTIONS (3)
  - BLOOD PROLACTIN INCREASED [None]
  - GYNAECOMASTIA [None]
  - THROMBOCYTOPENIA [None]
